FAERS Safety Report 7072594-1 (Version None)
Quarter: 2010Q4

REPORT INFORMATION
  Report Type: 
  Country: None (occurrence: None)
  Receive Date: 20101029
  Receipt Date: 20100217
  Transmission Date: 20110411
  Serious: No
  Sender: FDA-Public Use
  Company Number: A0844943A

PATIENT
  Age: 67 Year
  Sex: Female

DRUGS (7)
  1. ADVAIR DISKUS 100/50 [Suspect]
     Indication: CHRONIC OBSTRUCTIVE PULMONARY DISEASE
     Dosage: 1PUFF TWICE PER DAY
     Route: 055
     Dates: start: 20100108
  2. METFORMIN [Concomitant]
  3. LOTREL [Concomitant]
  4. CRESTOR [Concomitant]
  5. HYDROCHLOROTHIAZIDE [Concomitant]
  6. SPIRIVA [Concomitant]
  7. XANAX [Concomitant]

REACTIONS (2)
  - GINGIVAL RECESSION [None]
  - TOOTH DISCOLOURATION [None]
